FAERS Safety Report 19217501 (Version 1)
Quarter: 2021Q2

REPORT INFORMATION
  Report Type: Report from Study
  Country: JP (occurrence: JP)
  Receive Date: 20210505
  Receipt Date: 20210505
  Transmission Date: 20210717
  Serious: Yes (Death, Hospitalization, Other)
  Sender: FDA-Public Use
  Company Number: PHHY2013JP172707

PATIENT
  Age: 45 Year
  Sex: Female
  Weight: 49 kg

DRUGS (4)
  1. VOTRIENT [Suspect]
     Active Substance: PAZOPANIB HYDROCHLORIDE
     Indication: SYNOVIAL SARCOMA
     Dosage: 400 MG, QD
     Route: 048
     Dates: start: 20130212, end: 20130224
  2. VOTRIENT [Suspect]
     Active Substance: PAZOPANIB HYDROCHLORIDE
     Dosage: 600 MG, QD
     Route: 048
     Dates: start: 20130225, end: 20130512
  3. VOTRIENT [Suspect]
     Active Substance: PAZOPANIB HYDROCHLORIDE
     Dosage: 400 MG, QD
     Route: 048
     Dates: start: 20130513, end: 20130723
  4. VOTRIENT [Suspect]
     Active Substance: PAZOPANIB HYDROCHLORIDE
     Dosage: 400 MG, QD
     Route: 048
     Dates: start: 20130821, end: 20131026

REACTIONS (8)
  - Malignant neoplasm progression [Fatal]
  - Metastases to liver [Fatal]
  - Pyrexia [Recovering/Resolving]
  - Haemoptysis [Fatal]
  - Synovial sarcoma [Fatal]
  - Pneumonia [Recovered/Resolved]
  - Hair colour changes [Not Recovered/Not Resolved]
  - Skin disorder [Not Recovered/Not Resolved]

NARRATIVE: CASE EVENT DATE: 20130527
